FAERS Safety Report 7490309-X (Version None)
Quarter: 2011Q2

REPORT INFORMATION
  Report Type: 
  Country: None (occurrence: None)
  Receive Date: 20110519
  Receipt Date: 20110318
  Transmission Date: 20111010
  Serious: Yes (Other)
  Sender: FDA-Public Use
  Company Number: US-BRISTOL-MYERS SQUIBB COMPANY-15563224

PATIENT
  Age: 15 Year
  Sex: Female

DRUGS (4)
  1. BARACLUDE [Suspect]
     Dates: end: 20110113
  2. MULTI-VITAMIN [Concomitant]
  3. MEPHYTON [Concomitant]
     Dosage: 2 PILLS A DAY
  4. BENADRYL [Concomitant]

REACTIONS (1)
  - DRUG INEFFECTIVE [None]
